FAERS Safety Report 7281345-7 (Version None)
Quarter: 2011Q1

REPORT INFORMATION
  Report Type: 
  Country: None (occurrence: None)
  Receive Date: 20110203
  Receipt Date: 20110203
  Transmission Date: 20110831
  Serious: Yes (Hospitalization, Disabling)
  Sender: FDA-Public Use
  Company Number: None

PATIENT
  Age: 55 Year
  Sex: Female
  Weight: 83.9154 kg

DRUGS (2)
  1. MAGNEVIST [Suspect]
     Indication: NUCLEAR MAGNETIC RESONANCE IMAGING
     Dosage: FOR FOOT IV
     Route: 042
     Dates: start: 20090521, end: 20090521
  2. ANTIMONY TC-99M ANTIMONY SULFER UNKNOWN UNKNOWN [Suspect]
     Indication: NUCLEAR MAGNETIC RESONANCE IMAGING
     Dosage: FOR SHOULDER IM
     Route: 030
     Dates: start: 20061001, end: 20061001

REACTIONS (19)
  - MUSCLE DISORDER [None]
  - PARAESTHESIA [None]
  - NEPHROGENIC SYSTEMIC FIBROSIS [None]
  - POOR QUALITY SLEEP [None]
  - MUSCLE SPASMS [None]
  - DIZZINESS [None]
  - PAIN [None]
  - CONNECTIVE TISSUE DISORDER [None]
  - BLOOD PRESSURE INCREASED [None]
  - HEART RATE INCREASED [None]
  - ANAEMIA [None]
  - MUSCLE TIGHTNESS [None]
  - AUTOIMMUNE DISORDER [None]
  - METAL POISONING [None]
  - LYMPH NODE PAIN [None]
  - GAIT DISTURBANCE [None]
  - NEUROPATHY PERIPHERAL [None]
  - JOINT SWELLING [None]
  - MYALGIA [None]
